FAERS Safety Report 15310093 (Version 1)
Quarter: 2018Q3

REPORT INFORMATION
  Report Type: Spontaneous
  Country: US (occurrence: US)
  Receive Date: 20180823
  Receipt Date: 20180823
  Transmission Date: 20181010
  Serious: No
  Sender: FDA-Public Use
  Company Number: US-PFIZER INC-2018334461

PATIENT
  Sex: Female

DRUGS (4)
  1. ADVIL [Suspect]
     Active Substance: IBUPROFEN
     Indication: HEADACHE
  2. ADVIL [Suspect]
     Active Substance: IBUPROFEN
     Indication: DYSMENORRHOEA
     Dosage: UNK
  3. ADVIL [Suspect]
     Active Substance: IBUPROFEN
     Indication: DYSMENORRHOEA
     Dosage: UNK
  4. ADVIL [Suspect]
     Active Substance: IBUPROFEN
     Indication: HEADACHE

REACTIONS (9)
  - Abdominal distension [Recovered/Resolved]
  - Pain [Recovered/Resolved]
  - Allergic reaction to excipient [Unknown]
  - Muscle spasms [Unknown]
  - Abdominal discomfort [Recovered/Resolved]
  - Swelling [Unknown]
  - Condition aggravated [Unknown]
  - Headache [Unknown]
  - Drug ineffective [Unknown]
